FAERS Safety Report 4438700-X (Version None)
Quarter: 2004Q3

REPORT INFORMATION
  Report Type: 
  Country: None (occurrence: None)
  Receive Date: 20040901
  Receipt Date: 20040428
  Transmission Date: 20050211
  Serious: Yes (Life-Threatening, Hospitalization, Other)
  Sender: FDA-Public Use
  Company Number: US-MERCK-0405USA00025

PATIENT
  Age: 58 Year
  Sex: Male
  Weight: 106 kg

DRUGS (2)
  1. ALLOPURINOL [Concomitant]
     Indication: GOUT
     Route: 048
     Dates: start: 20040301
  2. VIOXX [Suspect]
     Indication: GOUT
     Route: 048
     Dates: start: 20040412, end: 20040415

REACTIONS (1)
  - MYOCARDIAL INFARCTION [None]
